FAERS Safety Report 5737529-X (Version None)
Quarter: 2008Q2

REPORT INFORMATION
  Report Type: 
  Country: None (occurrence: None)
  Receive Date: 20080512
  Receipt Date: 20080512
  Transmission Date: 20081010
  Serious: Yes (Disabling, Other)
  Sender: FDA-Public Use
  Company Number: None

PATIENT
  Sex: Male
  Weight: 104.3273 kg

DRUGS (1)
  1. NARDIL [Suspect]
     Indication: DEPRESSION
     Dosage: 75 MG DAILY MOUTH
     Route: 048
     Dates: start: 19880101

REACTIONS (5)
  - AGORAPHOBIA [None]
  - ANXIETY [None]
  - ASTHENIA [None]
  - FATIGUE [None]
  - MOOD SWINGS [None]
